FAERS Safety Report 12263940 (Version 2)
Quarter: 2016Q2

REPORT INFORMATION
  Report Type: Report from Study
  Country: US (occurrence: US)
  Receive Date: 20160413
  Receipt Date: 20160607
  Transmission Date: 20160815
  Serious: No
  Sender: FDA-Public Use
  Company Number: US-MDT-ADR-2016-00664

PATIENT
  Age: 57 Year
  Sex: Female

DRUGS (6)
  1. LIDODERM [Concomitant]
     Active Substance: LIDOCAINE
     Dosage: 5% PATCH
     Route: 062
  2. BACLOFEN. [Suspect]
     Active Substance: BACLOFEN
     Dosage: 508.2MCG/DAY
     Route: 037
     Dates: start: 20150914
  3. FENTANYL. [Suspect]
     Active Substance: FENTANYL
     Dosage: 55.93MCG/DAY
     Route: 037
     Dates: start: 20150914
  4. ROPIVACAINE [Suspect]
     Active Substance: ROPIVACAINE
     Dosage: 2.5423MG/DAY
     Route: 037
     Dates: start: 20150914, end: 20150915
  5. BACLOFEN. [Concomitant]
     Active Substance: BACLOFEN
  6. NEURONTIN [Concomitant]
     Active Substance: GABAPENTIN

REACTIONS (2)
  - Drug hypersensitivity [Recovered/Resolved]
  - Pruritus [Recovered/Resolved]

NARRATIVE: CASE EVENT DATE: 20150914
